FAERS Safety Report 21127304 (Version 1)
Quarter: 2022Q3

REPORT INFORMATION
  Report Type: Spontaneous
  Country: DE (occurrence: DE)
  Receive Date: 20220725
  Receipt Date: 20220725
  Transmission Date: 20221027
  Serious: Yes (Other)
  Sender: FDA-Public Use
  Company Number: DE-GILEAD-2022-0589692

PATIENT
  Age: 62 Year
  Sex: Female
  Weight: 105 kg

DRUGS (9)
  1. TECARTUS [Suspect]
     Active Substance: BREXUCABTAGENE AUTOLEUCEL
     Indication: Lymphoma
     Route: 065
  2. TORSEMIDE [Concomitant]
     Active Substance: TORSEMIDE
  3. OLMESARTAN [Concomitant]
     Active Substance: OLMESARTAN
  4. METOPROLOL [Concomitant]
     Active Substance: METOPROLOL
  5. PANTOZOL [ERYTHROMYCIN ETHYLSUCCINATE;SULFAFURAZOLE] [Concomitant]
  6. HYDROMORPHONE [Concomitant]
     Active Substance: HYDROMORPHONE
  7. ACYCLOVIR [Concomitant]
     Active Substance: ACYCLOVIR
  8. COTRIM [Concomitant]
     Active Substance: SULFAMETHOXAZOLE\TRIMETHOPRIM
  9. IMBRUVICA [Concomitant]
     Active Substance: IBRUTINIB

REACTIONS (1)
  - Disease progression [Unknown]

NARRATIVE: CASE EVENT DATE: 20220711
